FAERS Safety Report 18135473 (Version 1)
Quarter: 2020Q3

REPORT INFORMATION
  Report Type: Spontaneous
  Country: US (occurrence: US)
  Receive Date: 20200811
  Receipt Date: 20200811
  Transmission Date: 20201103
  Serious: Yes (Other)
  Sender: FDA-Public Use
  Company Number: US-GILEAD-2020-0488952

PATIENT
  Age: 54 Year
  Sex: Male
  Weight: 67.57 kg

DRUGS (60)
  1. ATRIPLA [Suspect]
     Active Substance: EFAVIRENZ\EMTRICITABINE\TENOFOVIR DISOPROXIL FUMARATE
     Indication: HIV INFECTION
     Dosage: UNK
     Route: 048
     Dates: start: 2006, end: 2015
  2. ZIAGEN [Concomitant]
     Active Substance: ABACAVIR SULFATE
  3. AMBIEN [Concomitant]
     Active Substance: ZOLPIDEM TARTRATE
  4. CIALIS [Concomitant]
     Active Substance: TADALAFIL
  5. CYCLOBENZAPRINE. [Concomitant]
     Active Substance: CYCLOBENZAPRINE
  6. LISINOPRIL. [Concomitant]
     Active Substance: LISINOPRIL
  7. LORAZEPAM. [Concomitant]
     Active Substance: LORAZEPAM
  8. RANITIDINE. [Concomitant]
     Active Substance: RANITIDINE
  9. ZETIA [Concomitant]
     Active Substance: EZETIMIBE
  10. STRIBILD [Suspect]
     Active Substance: COBICISTAT\ELVITEGRAVIR\EMTRICITABINE\TENOFOVIR DISOPROXIL FUMARATE
     Indication: HIV INFECTION
     Dosage: UNK
     Route: 048
     Dates: start: 2015, end: 2017
  11. APRISO [Concomitant]
     Active Substance: MESALAMINE
  12. BUDEPRION [Concomitant]
     Active Substance: BUPROPION HYDROCHLORIDE
  13. DRONABINOL. [Concomitant]
     Active Substance: DRONABINOL
  14. WELLBUTRIN [Concomitant]
     Active Substance: BUPROPION HYDROCHLORIDE
  15. ZONALON [Concomitant]
     Active Substance: DOXEPIN HYDROCHLORIDE
  16. VIREAD [Suspect]
     Active Substance: TENOFOVIR DISOPROXIL FUMARATE
     Indication: HIV INFECTION
     Dosage: UNK
     Route: 048
     Dates: start: 2008, end: 200812
  17. ZERIT [Concomitant]
     Active Substance: STAVUDINE
  18. AMLODIPINE [Concomitant]
     Active Substance: AMLODIPINE BESYLATE
  19. CLOTRIMAZOLE. [Concomitant]
     Active Substance: CLOTRIMAZOLE
  20. FLORASTOR [LACTOBACILLUS ACIDOPHILUS] [Concomitant]
  21. HYDROCODONE [Concomitant]
     Active Substance: HYDROCODONE
  22. LANSOPRAZOLE. [Concomitant]
     Active Substance: LANSOPRAZOLE
  23. LUNESTA [Concomitant]
     Active Substance: ESZOPICLONE
  24. PREVACID [Concomitant]
     Active Substance: LANSOPRAZOLE
  25. ZOLPIDEM [Concomitant]
     Active Substance: ZOLPIDEM TARTRATE
  26. RETROVIR [Concomitant]
     Active Substance: ZIDOVUDINE
  27. ACIPHEX [Concomitant]
     Active Substance: RABEPRAZOLE SODIUM
  28. AMOXICILLIN. [Concomitant]
     Active Substance: AMOXICILLIN
  29. CLINDAMYCIN. [Concomitant]
     Active Substance: CLINDAMYCIN
  30. LIDOCAINE. [Concomitant]
     Active Substance: LIDOCAINE
  31. METHYLPREDNISOLONE. [Concomitant]
     Active Substance: METHYLPREDNISOLONE
  32. MOMETASONE [Concomitant]
     Active Substance: MOMETASONE
  33. MUPIROCIN. [Concomitant]
     Active Substance: MUPIROCIN
  34. BUDESONIDE. [Concomitant]
     Active Substance: BUDESONIDE
  35. CIMZIA [Concomitant]
     Active Substance: CERTOLIZUMAB PEGOL
  36. CLOBETASOL [Concomitant]
     Active Substance: CLOBETASOL
  37. DICYCLOMINE HCL [Concomitant]
     Active Substance: DICYCLOMINE HYDROCHLORIDE
  38. HYDROXYZINE [Concomitant]
     Active Substance: HYDROXYZINE HYDROCHLORIDE
  39. LIALDA [Concomitant]
     Active Substance: MESALAMINE
  40. PANTOPRAZOLE [Concomitant]
     Active Substance: PANTOPRAZOLE
  41. BYSTOLIC [Concomitant]
     Active Substance: NEBIVOLOL HYDROCHLORIDE
  42. COLCHICINE. [Concomitant]
     Active Substance: COLCHICINE
  43. DOXYCYCLINE HYCLATE. [Concomitant]
     Active Substance: DOXYCYCLINE HYCLATE
  44. BIKTARVY [Concomitant]
     Active Substance: BICTEGRAVIR SODIUM\EMTRICITABINE\TENOFOVIR ALAFENAMIDE FUMARATE
  45. DEXILANT [Concomitant]
     Active Substance: DEXLANSOPRAZOLE
  46. DIPHENOXYLATE/ATROPINE [Concomitant]
     Active Substance: ATROPINE\DIPHENOXYLATE
  47. FLUVIRINE [Concomitant]
  48. METOPROLOL. [Concomitant]
     Active Substance: METOPROLOL
  49. METRONIDAZOLE. [Concomitant]
     Active Substance: METRONIDAZOLE
  50. OXYCODONE AND ACETAMINOPHEN [Concomitant]
     Active Substance: ACETAMINOPHEN\OXYCODONE HYDROCHLORIDE
  51. PREDNISOLONE. [Concomitant]
     Active Substance: PREDNISOLONE
  52. EPIVIR [Concomitant]
     Active Substance: LAMIVUDINE
  53. GENVOYA [Concomitant]
     Active Substance: COBICISTAT\ELVITEGRAVIR\EMTRICITABINE\TENOFOVIR ALAFENAMIDE FUMARATE
  54. CIPROFLOXACIN. [Concomitant]
     Active Substance: CIPROFLOXACIN
  55. FLUCONAZOLE. [Concomitant]
     Active Substance: FLUCONAZOLE
  56. HUMIRA [Concomitant]
     Active Substance: ADALIMUMAB
  57. LEVAQUIN [Concomitant]
     Active Substance: LEVOFLOXACIN
  58. MESALAMINE. [Concomitant]
     Active Substance: MESALAMINE
  59. ONDANSETRON [Concomitant]
     Active Substance: ONDANSETRON
  60. TRAMADOL. [Concomitant]
     Active Substance: TRAMADOL

REACTIONS (4)
  - Osteopenia [Not Recovered/Not Resolved]
  - Pain [Not Recovered/Not Resolved]
  - Fracture [Not Recovered/Not Resolved]
  - End stage renal disease [Not Recovered/Not Resolved]

NARRATIVE: CASE EVENT DATE: 201409
